FAERS Safety Report 8844854 (Version 4)
Quarter: 2012Q4

REPORT INFORMATION
  Report Type: 
  Country: US (occurrence: US)
  Receive Date: 20121017
  Receipt Date: 20121127
  Transmission Date: 20130627
  Serious: Yes (Hospitalization, Other)
  Sender: FDA-Public Use
  Company Number: US-UCBSA-068817

PATIENT
  Age: 25 Year
  Sex: Female

DRUGS (3)
  1. CIMZIA [Suspect]
     Indication: CROHN^S DISEASE
     Route: 058
     Dates: start: 20120828, end: 2012
  2. CIMZIA [Suspect]
     Indication: CROHN^S DISEASE
     Route: 058
     Dates: start: 201209
  3. NO CONCOMITANT MEDICATION [Concomitant]

REACTIONS (2)
  - Crohn^s disease [Not Recovered/Not Resolved]
  - Vision blurred [Unknown]
